FAERS Safety Report 6370142-2 (Version None)
Quarter: 2009Q3

REPORT INFORMATION
  Report Type: 
  Country: None (occurrence: None)
  Receive Date: 20090923
  Receipt Date: 20071220
  Transmission Date: 20100115
  Serious: Yes (Other)
  Sender: FDA-Public Use
  Company Number: US-ASTRAZENECA-2006UW21077

PATIENT
  Sex: Female
  Weight: 61.2 kg

DRUGS (25)
  1. SEROQUEL [Suspect]
     Indication: PANIC DISORDER
     Route: 048
     Dates: start: 20020101, end: 20061201
  2. SEROQUEL [Suspect]
     Indication: ANXIETY
     Route: 048
     Dates: start: 20020101, end: 20061201
  3. EFFEXOR [Concomitant]
  4. ZOLOFT [Concomitant]
  5. BUSPAR [Concomitant]
  6. NEUROMIN [Concomitant]
  7. CELEXA [Concomitant]
  8. PROZAC [Concomitant]
  9. CYMBALTA [Concomitant]
  10. LUVOX [Concomitant]
  11. NORTRIPTYLINE HYDROCHLORIDE [Concomitant]
  12. PROPRANOLOL [Concomitant]
  13. ALPRAZOLAM [Concomitant]
  14. KLONAPIN [Concomitant]
  15. ALBUTEROL [Concomitant]
  16. TIMOLOL [Concomitant]
  17. LANTUS [Concomitant]
  18. HUMALOG [Concomitant]
  19. CLONIDINE [Concomitant]
  20. ASPIRIN [Concomitant]
  21. NEURONTIN [Concomitant]
  22. MINOCIN [Concomitant]
  23. NOVOLOG [Concomitant]
  24. LEVEMIR [Concomitant]
  25. NOVOLIN N [Concomitant]

REACTIONS (3)
  - DIABETES MELLITUS [None]
  - DIABETIC COMA [None]
  - DIABETIC KETOACIDOSIS [None]
